FAERS Safety Report 12248257 (Version 1)
Quarter: 2016Q2

REPORT INFORMATION
  Report Type: Spontaneous
  Country: US (occurrence: None)
  Receive Date: 20160407
  Receipt Date: 20160407
  Transmission Date: 20160815
  Serious: No
  Sender: FDA-Public Use
  Company Number: None

PATIENT
  Age: 29 Year
  Sex: Female
  Weight: 70.31 kg

DRUGS (2)
  1. AZITHROMYCIN TABLETS 250 MG, 250 MG GREENSTONE BRAND [Suspect]
     Active Substance: AZITHROMYCIN ANHYDROUS
     Dosage: 2 TABLET(S) ONCE A DAY TAKEN BY MOUTH
     Route: 048
  2. MARLISSA [Concomitant]
     Active Substance: ETHINYL ESTRADIOL\LEVONORGESTREL

REACTIONS (1)
  - Abdominal pain upper [None]

NARRATIVE: CASE EVENT DATE: 20160405
